FAERS Safety Report 9916856 (Version 1)
Quarter: 2014Q1

REPORT INFORMATION
  Report Type: Spontaneous
  Country: US (occurrence: US)
  Receive Date: 20140221
  Receipt Date: 20140221
  Transmission Date: 20141002
  Serious: No
  Sender: FDA-Public Use
  Company Number: US-MYLANLABS-2013S1027698

PATIENT
  Age: 83 Year
  Sex: Female
  Weight: 90.72 kg

DRUGS (3)
  1. HYDROCHLOROTHIAZIDE CAPSULES [Suspect]
     Indication: OEDEMA
     Route: 048
     Dates: start: 20130524, end: 201311
  2. LISINOPRIL [Concomitant]
     Indication: BLOOD PRESSURE INCREASED
     Route: 048
  3. TAZTIA [Concomitant]
     Indication: BLOOD PRESSURE INCREASED
     Route: 048

REACTIONS (3)
  - Abdominal pain [Recovered/Resolved]
  - Fatigue [Not Recovered/Not Resolved]
  - Lacrimation increased [Recovered/Resolved]
